FAERS Safety Report 7559318-6 (Version None)
Quarter: 2011Q2

REPORT INFORMATION
  Report Type: 
  Country: None (occurrence: None)
  Receive Date: 20110621
  Receipt Date: 20110607
  Transmission Date: 20111010
  Serious: Yes (Hospitalization, Other)
  Sender: FDA-Public Use
  Company Number: IT-CELGENEUS-083-21880-11061002

PATIENT
  Age: 77 Year
  Sex: Female

DRUGS (1)
  1. REVLIMID [Suspect]
     Dosage: 10 MILLIGRAM
     Route: 048
     Dates: start: 20081001, end: 20081101

REACTIONS (7)
  - NEUTROPENIA [None]
  - ATRIAL FIBRILLATION [None]
  - SKIN INFECTION [None]
  - GASTROINTESTINAL PAIN [None]
  - ASTHENIA [None]
  - THYROTOXIC CRISIS [None]
  - NAUSEA [None]
